FAERS Safety Report 9759821 (Version 1)
Quarter: 2013Q4

REPORT INFORMATION
  Report Type: Spontaneous
  Country: CH (occurrence: CH)
  Receive Date: 20131216
  Receipt Date: 20131216
  Transmission Date: 20140711
  Serious: Yes (Hospitalization, Other)
  Sender: FDA-Public Use
  Company Number: CH-PFIZER INC-2013354939

PATIENT
  Age: 87 Year
  Sex: Male

DRUGS (10)
  1. ZOLOFT [Suspect]
     Dosage: 25 MG, 1X/DAY
     Route: 048
  2. ZALDIAR [Interacting]
     Indication: BACK PAIN
     Dosage: 1 DF, 3X/DAY
     Route: 048
     Dates: start: 20130812, end: 20130820
  3. ATACAND PLUS [Concomitant]
     Dosage: UNK
  4. ACTOS [Concomitant]
     Dosage: UNK
  5. METFORMIN [Concomitant]
     Dosage: UNK
  6. DOXIUM [Concomitant]
     Dosage: UNK
  7. PROSCAR [Concomitant]
     Dosage: UNK
  8. IMOVANE [Concomitant]
     Dosage: UNK
  9. SYMFONA [Concomitant]
     Dosage: UNK
  10. VIMOVO [Concomitant]
     Indication: BACK PAIN
     Dosage: UNK
     Dates: start: 20130812

REACTIONS (6)
  - Drug interaction [Recovered/Resolved]
  - Urinary retention [Recovered/Resolved]
  - Confusional state [Recovered/Resolved]
  - Delirium [Recovered/Resolved]
  - Hypertension [Unknown]
  - Mydriasis [Unknown]
